FAERS Safety Report 10401162 (Version 1)
Quarter: 2014Q3

REPORT INFORMATION
  Report Type: Report from Study
  Country: CN (occurrence: CN)
  Receive Date: 20140822
  Receipt Date: 20140822
  Transmission Date: 20150326
  Serious: Yes (Other)
  Sender: FDA-Public Use
  Company Number: CN-ROCHE-1451494

PATIENT

DRUGS (2)
  1. CAPECITABINE [Suspect]
     Active Substance: CAPECITABINE
     Indication: COLORECTAL CANCER
     Dosage: ADMINISTERED PRIOR TO MAINTENANCE THERAPY- DAY 1 TO DAY 14, MAINTENANCE THERAPY- 21 DAYS CYCLE FOR T
     Route: 048
  2. OXALIPLATIN. [Suspect]
     Active Substance: OXALIPLATIN
     Indication: COLORECTAL CANCER
     Dosage: 3 CONTINUOUS HOURS ON THE FIRST DAY.
     Route: 042

REACTIONS (8)
  - Hepatic function abnormal [Unknown]
  - Vomiting [Unknown]
  - Diarrhoea [Unknown]
  - Haematotoxicity [Unknown]
  - Nausea [Unknown]
  - Palmar-plantar erythrodysaesthesia syndrome [Unknown]
  - Stomatitis [Unknown]
  - Skin disorder [Unknown]
